FAERS Safety Report 18810748 (Version 2)
Quarter: 2021Q2

REPORT INFORMATION
  Report Type: Spontaneous
  Country: US (occurrence: US)
  Receive Date: 20210129
  Receipt Date: 20210511
  Transmission Date: 20210717
  Serious: Yes (Death, Other)
  Sender: FDA-Public Use
  Company Number: US-BRISTOL-MYERS SQUIBB COMPANY-BMS-2021-008777

PATIENT
  Age: 52 Year
  Sex: Female

DRUGS (2)
  1. OPDIVO [Suspect]
     Active Substance: NIVOLUMAB
     Indication: NEOPLASM MALIGNANT
     Dosage: 210 MILLIGRAM, Q3WK
     Route: 042
     Dates: start: 20201015
  2. YERVOY [Suspect]
     Active Substance: IPILIMUMAB
     Indication: NEOPLASM MALIGNANT
     Dosage: 70 MILLIGRAM, Q3WK
     Route: 042
     Dates: start: 20201015

REACTIONS (2)
  - Death [Fatal]
  - Intentional product use issue [Unknown]
